FAERS Safety Report 8809489 (Version 1)
Quarter: 2012Q4

REPORT INFORMATION
  Report Type: 
  Country: US (occurrence: US)
  Receive Date: 20120926
  Receipt Date: 20120926
  Transmission Date: 20130627
  Serious: Yes (Other)
  Sender: FDA-Public Use
  Company Number: US-B.I. PHARMACEUTICALS,INC./RIDGEFIELD-2012-BP-23131BP

PATIENT
  Age: 70 Year
  Sex: Male
  Weight: 77 kg

DRUGS (3)
  1. SPIRIVA [Suspect]
     Indication: CHRONIC OBSTRUCTIVE PULMONARY DISEASE
     Dosage: 18 mcg
     Route: 055
     Dates: start: 2007
  2. VENTOLIN [Concomitant]
     Indication: LUNG DISORDER
     Route: 055
     Dates: start: 2002
  3. SYMBICORT [Concomitant]
     Indication: LUNG DISORDER
     Route: 055
     Dates: start: 2010

REACTIONS (3)
  - Pulmonary arterial hypertension [Unknown]
  - Lung hyperinflation [Not Recovered/Not Resolved]
  - Hypertension [Not Recovered/Not Resolved]
